FAERS Safety Report 8028511-0 (Version None)
Quarter: 2012Q1

REPORT INFORMATION
  Report Type: 
  Country: None (occurrence: None)
  Receive Date: 20120104
  Receipt Date: 20111221
  Transmission Date: 20120608
  Serious: Yes (Hospitalization)
  Sender: FDA-Public Use
  Company Number: 2011SP059503

PATIENT
  Age: 66 Year
  Sex: Female

DRUGS (5)
  1. BOCEPREVIR (SCH-503034) [Suspect]
     Indication: HEPATIC CIRRHOSIS
     Dosage: 800 MG; TID
     Dates: start: 20111004
  2. BOCEPREVIR (SCH-503034) [Suspect]
     Indication: HEPATITIS C
     Dosage: 800 MG; TID
     Dates: start: 20111004
  3. RIBAVIRIN [Suspect]
  4. INTERFERON ALFA NOS [Suspect]
     Indication: HEPATITIS C
     Dosage: 180 MCG; QW; SC
     Route: 058
     Dates: start: 20111004
  5. INTERFERON ALFA NOS [Suspect]
     Indication: HEPATIC CIRRHOSIS
     Dosage: 180 MCG; QW; SC
     Route: 058
     Dates: start: 20111004

REACTIONS (6)
  - URINARY TRACT INFECTION [None]
  - NEUTROPENIA [None]
  - BACTERAEMIA [None]
  - ESCHERICHIA TEST POSITIVE [None]
  - SEPSIS [None]
  - HAEMOGLOBIN DECREASED [None]
